FAERS Safety Report 21659409 (Version 1)
Quarter: 2022Q4

REPORT INFORMATION
  Report Type: Spontaneous
  Country: US (occurrence: US)
  Receive Date: 20221129
  Receipt Date: 20221129
  Transmission Date: 20230113
  Serious: No
  Sender: FDA-Public Use
  Company Number: US-THERATECHNOLOGIES INC.-2022-THE-TES-000332

PATIENT

DRUGS (2)
  1. EGRIFTA SV [Suspect]
     Active Substance: TESAMORELIN ACETATE
     Indication: Lipodystrophy acquired
     Route: 058
  2. BUPROPION [Concomitant]
     Active Substance: BUPROPION
     Indication: Weight control
     Route: 065

REACTIONS (3)
  - Glycosylated haemoglobin increased [Recovered/Resolved]
  - Therapeutic response delayed [Unknown]
  - Intentional product use issue [Recovered/Resolved]
